FAERS Safety Report 21388947 (Version 1)
Quarter: 2022Q3

REPORT INFORMATION
  Report Type: Spontaneous
  Country: US (occurrence: US)
  Receive Date: 20220929
  Receipt Date: 20220929
  Transmission Date: 20221027
  Serious: Yes (Death, Life-Threatening, Hospitalization)
  Sender: FDA-Public Use
  Company Number: US-STRIDES ARCOLAB LIMITED-2022SP012369

PATIENT
  Age: 58 Year
  Sex: Female

DRUGS (4)
  1. PREDNISOLONE [Suspect]
     Active Substance: PREDNISOLONE
     Indication: Liver transplant
     Dosage: 20 MILLIGRAM, PER DAY
     Route: 065
  2. TACROLIMUS [Suspect]
     Active Substance: TACROLIMUS
     Indication: Liver transplant
     Dosage: UNK, TARGETED TO A TROUGH LEVEL OF 5-10 NG/DL
     Route: 065
  3. AZATHIOPRINE [Suspect]
     Active Substance: AZATHIOPRINE
     Indication: Liver transplant
     Dosage: 50 MILLIGRAM
     Route: 065
  4. METHYLPREDNISOLONE [Suspect]
     Active Substance: METHYLPREDNISOLONE
     Indication: Liver transplant
     Dosage: 1000 MILLIGRAM, PER DAY
     Route: 042

REACTIONS (7)
  - Multiple organ dysfunction syndrome [Fatal]
  - Septic shock [Fatal]
  - Haemophagocytic lymphohistiocytosis [Unknown]
  - Epstein-Barr virus infection [Unknown]
  - Klebsiella infection [Unknown]
  - Klebsiella bacteraemia [Unknown]
  - Candida infection [Unknown]
